FAERS Safety Report 7583732-6 (Version None)
Quarter: 2011Q2

REPORT INFORMATION
  Report Type: 
  Country: None (occurrence: None)
  Receive Date: 20110630
  Receipt Date: 20110622
  Transmission Date: 20111010
  Serious: Yes (Other)
  Sender: FDA-Public Use
  Company Number: JP-ROCHE-784702

PATIENT
  Age: 50 Year
  Sex: Male

DRUGS (5)
  1. FLUOROURACIL [Concomitant]
     Dosage: UNCERTAIN DOSAGE AND NINE COURSES, FORM: INTRAVENOUS DRIP
     Route: 040
     Dates: start: 20080901
  2. AVASTIN [Suspect]
     Indication: RECTOSIGMOID CANCER METASTATIC
     Dosage: UNCERTAIN DOSAGE AND SIX COURSES
     Route: 041
  3. OXALIPLATIN [Suspect]
     Indication: RECTOSIGMOID CANCER METASTATIC
     Dosage: UNCERTAIN DOSAGE AND NINE COURSES
     Route: 041
     Dates: start: 20080901
  4. LEUCOVORIN CALCIUM [Concomitant]
     Dosage: UNCERTAIN DOSAGE AND NINE COURSES
     Route: 040
     Dates: start: 20080901
  5. FLUOROURACIL [Concomitant]
     Dosage: UNCERTAIN DOSAGE AND NINE COURSES
     Route: 040
     Dates: start: 20080901

REACTIONS (3)
  - HYPOAESTHESIA [None]
  - VOMITING [None]
  - SPLENOMEGALY [None]
